FAERS Safety Report 9709003 (Version 1)
Quarter: 2013Q4

REPORT INFORMATION
  Report Type: Spontaneous
  Country: KR (occurrence: None)
  Receive Date: 20131122
  Receipt Date: 20131122
  Transmission Date: 20140711
  Serious: Yes (Other)
  Sender: FDA-Public Use
  Company Number: ABR_01263_2013

PATIENT
  Age: 57 Year
  Sex: Female

DRUGS (2)
  1. ERYTHROMYCIN [Suspect]
     Indication: PRODUCT USED FOR UNKNOWN INDICATION
     Dosage: (25 MG 1X, [SINGLE DOSE OF 25 MG] ORAL)
     Route: 048
  2. DOXYCYCLINE (DOXYCYCLINE) [Suspect]
     Indication: PRODUCT USED FOR UNKNOWN INDICATION
     Dosage: (10 MG 1X, [SINGLE DOSE OF 10 MG] ORAL)
     Route: 048

REACTIONS (3)
  - Pruritus [None]
  - Erythema [None]
  - Drug eruption [None]
